FAERS Safety Report 14798560 (Version 1)
Quarter: 2018Q2

REPORT INFORMATION
  Report Type: Spontaneous
  Country: FR (occurrence: FR)
  Receive Date: 20180424
  Receipt Date: 20180424
  Transmission Date: 20180711
  Serious: Yes (Other)
  Sender: FDA-Public Use
  Company Number: FR-KRKA, D.D., NOVO MESTO-2046355

PATIENT
  Age: 72 Year
  Sex: Male

DRUGS (8)
  1. CISPLATINE ACCORD [Suspect]
     Active Substance: CISPLATIN
     Route: 042
     Dates: start: 20171229, end: 20171229
  2. PRIMPERAN [Suspect]
     Active Substance: METOCLOPRAMIDE HYDROCHLORIDE
     Route: 048
  3. LANSOPRAZOLE. [Suspect]
     Active Substance: LANSOPRAZOLE
     Route: 048
     Dates: start: 20171229
  4. CORTANCYL [Suspect]
     Active Substance: PREDNISONE
     Route: 048
     Dates: start: 20171228, end: 20171230
  5. EMEND [Suspect]
     Active Substance: APREPITANT
     Route: 048
     Dates: start: 20171230, end: 20171230
  6. SPECIAFOLDINE 0.4 MG [Suspect]
     Active Substance: FOLIC ACID
     Route: 048
     Dates: start: 20171229
  7. DOLIPRANE [Suspect]
     Active Substance: ACETAMINOPHEN
     Route: 048
  8. ALIMTA [Suspect]
     Active Substance: PEMETREXED DISODIUM
     Route: 042
     Dates: start: 20171229, end: 20171229

REACTIONS (4)
  - Diabetic metabolic decompensation [Recovered/Resolved]
  - Rash [Recovered/Resolved]
  - Leukopenia [Recovered/Resolved]
  - Aphthous ulcer [Recovered/Resolved]

NARRATIVE: CASE EVENT DATE: 20171229
